FAERS Safety Report 6340243-3 (Version None)
Quarter: 2009Q3

REPORT INFORMATION
  Report Type: 
  Country: None (occurrence: None)
  Receive Date: 20090902
  Receipt Date: 20090819
  Transmission Date: 20100115
  Serious: Yes (Hospitalization)
  Sender: FDA-Public Use
  Company Number: 000616

PATIENT
  Sex: Female

DRUGS (9)
  1. ROTIGOTINE (ROTIGOTINE) [Suspect]
     Indication: PARKINSON'S DISEASE
     Dosage: 4.5 MG QD TRANSDERMAL, 31.5 MG TRANSDERMAL
     Route: 062
     Dates: start: 20090224, end: 20090327
  2. ROTIGOTINE (ROTIGOTINE) [Suspect]
     Indication: PARKINSON'S DISEASE
     Dosage: 4.5 MG QD TRANSDERMAL, 31.5 MG TRANSDERMAL
     Route: 062
     Dates: start: 20080930
  3. SYMMETREL [Suspect]
     Indication: PARKINSON'S DISEASE
     Dosage: 100 MG QD ORAL
     Route: 048
     Dates: start: 20080804, end: 20090327
  4. ARTANE [Suspect]
     Indication: PARKINSON'S DISEASE
     Dosage: 4 MG QD ORAL
     Route: 048
     Dates: start: 20060901, end: 20090327
  5. REBAMIPIDE [Concomitant]
  6. LOXOPROFEN SODIUM [Concomitant]
  7. TEPRENONE [Concomitant]
  8. KETOPROFEN [Concomitant]
  9. INDOMETHACIN [Concomitant]

REACTIONS (6)
  - ABNORMAL BEHAVIOUR [None]
  - DELUSION [None]
  - GAIT DISTURBANCE [None]
  - POTENTIATING DRUG INTERACTION [None]
  - SPEECH DISORDER [None]
  - TREMOR [None]
